FAERS Safety Report 17883883 (Version 1)
Quarter: 2020Q2

REPORT INFORMATION
  Report Type: Spontaneous
  Country: US (occurrence: US)
  Receive Date: 20200610
  Receipt Date: 20200610
  Transmission Date: 20200714
  Serious: Yes (Other)
  Sender: FDA-Public Use
  Company Number: None

PATIENT
  Age: 43 Year
  Sex: Female

DRUGS (1)
  1. AMITRIPTYLINE 25MG FILM COATED TABLET [Suspect]
     Active Substance: AMITRIPTYLINE HYDROCHLORIDE
     Indication: MIGRAINE
     Route: 048
     Dates: start: 20200508, end: 20200525

REACTIONS (2)
  - Drug ineffective [None]
  - Off label use [None]

NARRATIVE: CASE EVENT DATE: 202005
